FAERS Safety Report 10532881 (Version 1)
Quarter: 2014Q4

REPORT INFORMATION
  Report Type: Report from Study
  Country: IL (occurrence: IL)
  Receive Date: 20141022
  Receipt Date: 20141022
  Transmission Date: 20150529
  Serious: Yes (Death, Hospitalization)
  Sender: FDA-Public Use
  Company Number: PHHY2014IL136620

PATIENT
  Age: 96 Year
  Sex: Female

DRUGS (1)
  1. SANDOSTATIN LAR DEPOT [Suspect]
     Active Substance: OCTREOTIDE ACETATE
     Indication: ACROMEGALY
     Dosage: 30 MG, QW4
     Route: 030
     Dates: start: 20120321

REACTIONS (3)
  - Haemorrhage [Fatal]
  - Vomiting [Fatal]
  - Abdominal pain [Fatal]

NARRATIVE: CASE EVENT DATE: 20141018
